FAERS Safety Report 5977364-0 (Version None)
Quarter: 2008Q4

REPORT INFORMATION
  Report Type: 
  Country: None (occurrence: None)
  Receive Date: 20081203
  Receipt Date: 20081125
  Transmission Date: 20090506
  Serious: Yes (Other)
  Sender: FDA-Public Use
  Company Number: PHHY2008CN29588

PATIENT
  Age: 70 Year
  Sex: Female

DRUGS (2)
  1. MIACALCIN [Suspect]
     Indication: OSTEOPOROSIS
     Dosage: 50 IU, QD
     Dates: start: 20050101
  2. MIACALCIN [Suspect]
     Dosage: 50 IU, QD
     Dates: start: 20081001

REACTIONS (2)
  - ADVERSE EVENT [None]
  - SYNCOPE [None]
